FAERS Safety Report 20027156 (Version 3)
Quarter: 2022Q1

REPORT INFORMATION
  Report Type: Report from Study
  Country: US (occurrence: US)
  Receive Date: 20211103
  Receipt Date: 20220203
  Transmission Date: 20220423
  Serious: Yes (Other)
  Sender: FDA-Public Use
  Company Number: US-ABBVIE-21K-163-4144103-00

PATIENT
  Age: 77 Year
  Sex: Male
  Weight: 83.990 kg

DRUGS (3)
  1. HUMIRA [Suspect]
     Active Substance: ADALIMUMAB
     Indication: Psoriatic arthropathy
     Dosage: CF
     Route: 058
     Dates: start: 201907
  2. HUMIRA [Suspect]
     Active Substance: ADALIMUMAB
     Indication: Psoriasis
  3. ASPIRIN [Concomitant]
     Active Substance: ASPIRIN
     Indication: Prophylaxis

REACTIONS (15)
  - Sciatic nerve injury [Recovered/Resolved]
  - Osteoarthritis [Recovering/Resolving]
  - Thermal burn [Recovered/Resolved]
  - Stress [Not Recovered/Not Resolved]
  - Anxiety [Not Recovered/Not Resolved]
  - Heart rate irregular [Unknown]
  - Blood pressure increased [Recovered/Resolved]
  - Urinary tract infection [Unknown]
  - Psoriasis [Not Recovered/Not Resolved]
  - Muscle spasms [Recovered/Resolved]
  - Coccydynia [Recovered/Resolved]
  - Ligament sprain [Unknown]
  - Arthralgia [Unknown]
  - Fatigue [Unknown]
  - Joint range of motion decreased [Unknown]

NARRATIVE: CASE EVENT DATE: 20210401
